FAERS Safety Report 6346172-3 (Version None)
Quarter: 2009Q3

REPORT INFORMATION
  Report Type: 
  Country: None (occurrence: None)
  Receive Date: 20090821
  Receipt Date: 20090528
  Transmission Date: 20100115
  Serious: No
  Sender: FDA-Public Use
  Company Number: 8047063

PATIENT
  Age: 34 Year
  Sex: Female
  Weight: 53.07 kg

DRUGS (8)
  1. CIMZIA [Suspect]
     Indication: CROHN'S DISEASE
     Dosage: 400 MG 1/2W SC
     Route: 058
  2. CIMZIA [Suspect]
     Indication: CROHN'S DISEASE
     Dosage: 400 MG /M SC
     Route: 058
     Dates: start: 20090527
  3. LEVOTHYROXINE SODIUM [Concomitant]
  4. DRISDOL [Concomitant]
  5. LISINOPRIL [Concomitant]
  6. HYDROCHLOROT [Concomitant]
  7. WELLBUTRIN XL [Concomitant]
  8. FLUOXETINE [Concomitant]

REACTIONS (2)
  - NAUSEA [None]
  - VOMITING [None]
